FAERS Safety Report 6790923-0 (Version None)
Quarter: 2010Q2

REPORT INFORMATION
  Report Type: 
  Country: None (occurrence: None)
  Receive Date: 20100624
  Receipt Date: 20100615
  Transmission Date: 20101027
  Serious: Yes (Other)
  Sender: FDA-Public Use
  Company Number: US-JNJFOC-20100606571

PATIENT
  Sex: Female

DRUGS (19)
  1. HALOPERIDOL [Suspect]
     Indication: PSYCHOTIC DISORDER
     Route: 065
  2. HALOPERIDOL [Suspect]
     Route: 065
  3. RISPERIDONE [Suspect]
     Indication: PSYCHOTIC DISORDER
     Route: 065
  4. RISPERIDONE [Suspect]
     Route: 065
  5. PALIPERIDONE [Suspect]
     Indication: PSYCHOTIC DISORDER
     Route: 065
  6. PALIPERIDONE [Suspect]
     Route: 065
  7. TOPIRAMATE [Suspect]
     Indication: WEIGHT LOSS DIET
     Route: 065
  8. TOPIRAMATE [Suspect]
     Indication: MIGRAINE
     Route: 065
  9. CARBAMAZEPINE [Suspect]
     Indication: PSYCHOTIC DISORDER
     Dosage: 4-12UG/ML
     Route: 065
  10. QUETIAPINE [Suspect]
     Indication: PSYCHOTIC DISORDER
     Route: 065
  11. QUETIAPINE [Suspect]
     Route: 065
  12. ZIPRASIDONE HCL [Suspect]
     Indication: PSYCHOTIC DISORDER
     Route: 065
  13. ZIPRASIDONE HCL [Suspect]
     Route: 065
  14. LITHIUM [Suspect]
     Indication: PSYCHOTIC DISORDER
     Dosage: 0.8-1.1MEQ/L
     Route: 065
  15. OLANZAPINE [Suspect]
     Indication: PSYCHOTIC DISORDER
     Route: 065
  16. OLANZAPINE [Suspect]
     Dosage: 0.8-1.1MEQ/L
     Route: 065
  17. VALPROIC ACID [Suspect]
     Indication: PSYCHOTIC DISORDER
     Dosage: 0.8-1.1MEQ/L
     Route: 065
  18. OXCARBAZEPINE [Suspect]
     Indication: PSYCHOTIC DISORDER
     Dosage: 0.8-1.1MEQ/L
     Route: 065
  19. OXCARBAZEPINE [Suspect]
     Route: 065

REACTIONS (1)
  - DRUG INEFFECTIVE [None]
